FAERS Safety Report 6735928-0 (Version None)
Quarter: 2010Q2

REPORT INFORMATION
  Report Type: 
  Country: None (occurrence: None)
  Receive Date: 20100521
  Receipt Date: 20100517
  Transmission Date: 20101027
  Serious: Yes (Life-Threatening, Hospitalization)
  Sender: FDA-Public Use
  Company Number: B0647398A

PATIENT
  Sex: Female
  Weight: 82.5 kg

DRUGS (12)
  1. ARIXTRA [Suspect]
     Indication: PHLEBITIS
     Dosage: 7.5MG PER DAY
     Route: 058
     Dates: start: 20091019, end: 20091023
  2. KARDEGIC [Suspect]
     Indication: CEREBROVASCULAR ACCIDENT
     Dosage: 160MG PER DAY
     Route: 048
     Dates: start: 20081106, end: 20091027
  3. CITALOPRAM [Suspect]
     Dosage: 20MG PER DAY
     Route: 048
     Dates: start: 20081106
  4. NEURONTIN [Suspect]
     Dosage: 300MG TWICE PER DAY
     Route: 048
     Dates: start: 20090811, end: 20091027
  5. COVERSYL [Concomitant]
     Indication: CEREBROVASCULAR ACCIDENT
     Dosage: 4MG PER DAY
     Route: 048
     Dates: start: 20081106
  6. FLUDEX [Concomitant]
     Indication: CEREBROVASCULAR ACCIDENT
     Dosage: 1.5MG PER DAY
     Route: 048
     Dates: start: 20081106
  7. LASILIX FAIBLE [Concomitant]
     Route: 048
  8. TAHOR [Concomitant]
     Route: 065
  9. SPECIAFOLDINE [Concomitant]
     Route: 065
  10. NITRODERM [Concomitant]
     Indication: ANGINA PECTORIS
  11. MOPRAL [Concomitant]
     Route: 065
  12. SOLUPRED [Concomitant]
     Dosage: 40MG PER DAY
     Route: 065

REACTIONS (5)
  - ANAEMIA [None]
  - INFLAMMATION [None]
  - LEUKOCYTOSIS [None]
  - MUSCLE HAEMORRHAGE [None]
  - RENAL FAILURE [None]
